FAERS Safety Report 5958388-6 (Version None)
Quarter: 2008Q4

REPORT INFORMATION
  Report Type: 
  Country: None (occurrence: None)
  Receive Date: 20081119
  Receipt Date: 20081110
  Transmission Date: 20090506
  Serious: Yes (Hospitalization)
  Sender: FDA-Public Use
  Company Number: DE-ASTRAZENECA-2008PK02456

PATIENT
  Age: 51 Year
  Sex: Female

DRUGS (4)
  1. NEXIUM [Suspect]
     Route: 048
     Dates: start: 20080705, end: 20080712
  2. MIRTAZAPINE [Suspect]
     Route: 048
     Dates: start: 20080710, end: 20080712
  3. MOVICOL [Concomitant]
     Dates: start: 20080707, end: 20080712
  4. MOVICOL [Concomitant]
     Dates: start: 20080713, end: 20080715

REACTIONS (1)
  - DERMATITIS ALLERGIC [None]
